FAERS Safety Report 9798706 (Version 1)
Quarter: 2014Q1

REPORT INFORMATION
  Report Type: Spontaneous
  Country: US (occurrence: US)
  Receive Date: 20140106
  Receipt Date: 20140106
  Transmission Date: 20141002
  Serious: No
  Sender: FDA-Public Use
  Company Number: US-GILEAD-2010-0029860

PATIENT
  Sex: Female
  Weight: 91.49 kg

DRUGS (11)
  1. LETAIRIS [Suspect]
     Indication: PULMONARY ARTERIAL HYPERTENSION
     Route: 048
     Dates: start: 20091023
  2. LASIX [Concomitant]
  3. TYLENOL [Concomitant]
  4. GEODON [Concomitant]
  5. MAALOX [Concomitant]
  6. REVATIO [Concomitant]
  7. APIDRA [Concomitant]
  8. WARFARIN [Concomitant]
  9. PULMICORT [Concomitant]
  10. DUONEB [Concomitant]
  11. BROVANA [Concomitant]

REACTIONS (3)
  - Swelling [Unknown]
  - Oedema [Unknown]
  - Rash [Unknown]
